FAERS Safety Report 11643987 (Version 1)
Quarter: 2015Q4

REPORT INFORMATION
  Report Type: Spontaneous
  Country: SG (occurrence: SG)
  Receive Date: 20151020
  Receipt Date: 20151020
  Transmission Date: 20160304
  Serious: Yes (Other)
  Sender: FDA-Public Use
  Company Number: PHHY2015SG124084

PATIENT
  Age: 2 Month
  Sex: Male
  Weight: 6.2 kg

DRUGS (1)
  1. CLOBETASOL [Suspect]
     Active Substance: CLOBETASOL
     Indication: DERMATITIS DIAPER
     Route: 061

REACTIONS (2)
  - Left ventricular hypertrophy [Recovered/Resolved]
  - Cushing^s syndrome [Recovered/Resolved]
